FAERS Safety Report 20702732 (Version 1)
Quarter: 2022Q2

REPORT INFORMATION
  Report Type: Spontaneous
  Country: PK (occurrence: PK)
  Receive Date: 20220412
  Receipt Date: 20220412
  Transmission Date: 20220721
  Serious: Yes (Other)
  Sender: FDA-Public Use
  Company Number: PK-PFIZER INC-202200510220

PATIENT
  Age: 43 Year
  Sex: Male

DRUGS (9)
  1. ENBREL [Suspect]
     Active Substance: ETANERCEPT
     Indication: Ankylosing spondylitis
     Dosage: 50 MILLIGRAM, QWK
     Route: 058
     Dates: start: 20211015
  2. NUBEROL [Concomitant]
  3. DELTACORTRIL [Concomitant]
     Active Substance: PREDNISOLONE
     Dosage: UNK
  4. GABICA [Concomitant]
     Dosage: 1 DF
  5. TRAMAL SR [TRAMADOL HYDROCHLORIDE] [Concomitant]
     Dosage: UNK
  6. RISEK [OMEPRAZOLE] [Concomitant]
     Dosage: UNK
  7. EZIDAY [Concomitant]
     Dosage: UNK
  8. CARA [LEFLUNOMIDE] [Concomitant]
     Dosage: UNK
  9. IBERET [ASCORBIC ACID;CALCIUM PANTOTHENATE;CYANOCOBALAMIN;FERROUS SULF [Concomitant]
     Dosage: UNK

REACTIONS (6)
  - Gait disturbance [Not Recovered/Not Resolved]
  - Blood pressure increased [Unknown]
  - Heart rate increased [Unknown]
  - Oxygen saturation decreased [Unknown]
  - Blood creatinine decreased [Unknown]
  - Haemoglobin increased [Unknown]
